FAERS Safety Report 15613615 (Version 1)
Quarter: 2018Q4

REPORT INFORMATION
  Report Type: Spontaneous
  Country: US (occurrence: US)
  Receive Date: 20181113
  Receipt Date: 20181113
  Transmission Date: 20190205
  Serious: Yes (Hospitalization, Other)
  Sender: FDA-Public Use
  Company Number: US-NOVOPROD-631587

PATIENT
  Age: 61 Year
  Sex: Female
  Weight: 80.73 kg

DRUGS (1)
  1. NOVOLIN R [Suspect]
     Active Substance: INSULIN HUMAN
     Indication: DIABETES MELLITUS
     Dosage: SLIDING SCALE
     Route: 058
     Dates: start: 20170501, end: 201803

REACTIONS (6)
  - Blood potassium increased [Unknown]
  - Muscle spasms [Unknown]
  - Myocardial infarction [Unknown]
  - Fall [Unknown]
  - Blood glucose decreased [Recovered/Resolved]
  - Cardiac arrest [Unknown]

NARRATIVE: CASE EVENT DATE: 20170501
